FAERS Safety Report 8603240 (Version 3)
Quarter: 2012Q4

REPORT INFORMATION
  Report Type: 
  Country: JP (occurrence: JP)
  Receive Date: 20120607
  Receipt Date: 20120912
  Transmission Date: 20130627
  Serious: Yes (Life-Threatening, Hospitalization, Other)
  Sender: FDA-Public Use
  Company Number: JP-ELI_LILLY_AND_COMPANY-JP201205009355

PATIENT
  Age: 34 Year
  Sex: Male
  Weight: 60 kg

DRUGS (12)
  1. ZYPREXA [Suspect]
     Dosage: 20 mg, qd
     Route: 048
     Dates: start: 20100408, end: 20100517
  2. ZYPREXA [Suspect]
     Dosage: 10 mg, qd
     Dates: start: 20100518, end: 20100815
  3. ZYPREXA [Suspect]
     Dosage: 20 mg, qd
     Dates: start: 20100816, end: 20110420
  4. ZYPREXA [Suspect]
     Dosage: 10 mg, qd
     Dates: start: 20110421, end: 20111109
  5. ZYPREXA [Suspect]
     Dosage: 20 mg, qd
     Dates: start: 20111110, end: 20120412
  6. AMOBAN [Concomitant]
     Dosage: 10 mg, qd
     Route: 065
     Dates: start: 20111027, end: 20111109
  7. AMOBAN [Concomitant]
     Dosage: 10 mg, qd
     Dates: start: 20111110, end: 20120412
  8. PAXIL [Concomitant]
     Dosage: 10 mg, qd
     Route: 065
     Dates: start: 20120202, end: 20120208
  9. PAXIL [Concomitant]
     Dosage: 20 mg, qd
     Dates: start: 20120209, end: 20120412
  10. RISPERDAL [Concomitant]
     Dosage: UNK UNK, prn
     Route: 065
     Dates: start: 20120209
  11. HALRACK AMEL [Concomitant]
     Dosage: 0.5 mg, qd
     Route: 065
     Dates: start: 20100816, end: 20120412
  12. LIMAS [Concomitant]
     Dosage: 200 mg, qd
     Route: 065
     Dates: start: 20120202, end: 20120412

REACTIONS (5)
  - Diabetic ketoacidosis [Recovered/Resolved]
  - Renal failure acute [Recovered/Resolved]
  - Disseminated intravascular coagulation [Recovered/Resolved]
  - Acute respiratory failure [Recovered/Resolved]
  - Blood creatine phosphokinase increased [Recovered/Resolved]
